FAERS Safety Report 25964262 (Version 1)
Quarter: 2025Q4

REPORT INFORMATION
  Report Type: Spontaneous
  Country: US (occurrence: US)
  Receive Date: 20251027
  Receipt Date: 20251027
  Transmission Date: 20260118
  Serious: No
  Sender: BIOMARIN
  Company Number: US-BIOMARINAP-US-2025-169591

PATIENT
  Age: 33 Year
  Sex: Female

DRUGS (1)
  1. PALYNZIQ [Suspect]
     Active Substance: PEGVALIASE-PQPZ
     Indication: Phenylketonuria
     Dosage: UNK

REACTIONS (4)
  - Influenza like illness [Unknown]
  - Chills [Unknown]
  - Hot flush [Unknown]
  - Pyrexia [Unknown]

NARRATIVE: CASE EVENT DATE: 20241101
